FAERS Safety Report 7342990-3 (Version None)
Quarter: 2011Q1

REPORT INFORMATION
  Report Type: 
  Country: None (occurrence: None)
  Receive Date: 20110310
  Receipt Date: 20110225
  Transmission Date: 20110831
  Serious: Yes (Other)
  Sender: FDA-Public Use
  Company Number: PHFR2011GB01311

PATIENT
  Sex: Female

DRUGS (2)
  1. CLOZARIL [Suspect]
     Dosage: 100 MG, UNK
     Route: 048
     Dates: end: 20110224
  2. CLOZARIL [Suspect]
     Indication: SCHIZOPHRENIA
     Dosage: 50 MG, BID
     Route: 048
     Dates: start: 20110208

REACTIONS (9)
  - HYPERHIDROSIS [None]
  - TACHYCARDIA [None]
  - TREMOR [None]
  - BODY TEMPERATURE INCREASED [None]
  - BLOOD PRESSURE INCREASED [None]
  - JOINT SWELLING [None]
  - OVERWEIGHT [None]
  - FATIGUE [None]
  - DYSPNOEA [None]
